FAERS Safety Report 9965090 (Version 1)
Quarter: 2014Q1

REPORT INFORMATION
  Report Type: Report from Study
  Country: US (occurrence: US)
  Receive Date: 20140305
  Receipt Date: 20140305
  Transmission Date: 20141002
  Serious: No
  Sender: FDA-Public Use
  Company Number: US-ABBVIE-13P-163-1124135-00

PATIENT
  Age: 46 Year
  Sex: Female

DRUGS (5)
  1. HUMIRA [Suspect]
     Indication: ANKYLOSING SPONDYLITIS
     Dates: start: 20130710
  2. LEXAPRO [Concomitant]
     Indication: MOOD ALTERED
     Dosage: 20 MG DAILY
  3. OMEPRAZOLE [Concomitant]
     Indication: GASTROOESOPHAGEAL REFLUX DISEASE
     Dosage: 20 MG DAILY
  4. ALIGN PROBIOTIC [Concomitant]
     Indication: COLITIS
     Dosage: DAILY
  5. PILL (CANNOT RECALL NAME) [Concomitant]
     Indication: COLITIS
     Dosage: TWICE DAILY 1 IN AM AND 1 IN PM

REACTIONS (1)
  - Rash [Not Recovered/Not Resolved]
